FAERS Safety Report 17252281 (Version 5)
Quarter: 2020Q2

REPORT INFORMATION
  Report Type: Spontaneous
  Country: US (occurrence: US)
  Receive Date: 20200109
  Receipt Date: 20200605
  Transmission Date: 20200713
  Serious: Yes (Hospitalization, Other)
  Sender: FDA-Public Use
  Company Number: US-LEXICON PHARMACEUTICALS, INC-20-1606-00014

PATIENT
  Age: 70 Year
  Sex: Female

DRUGS (4)
  1. SANDOSTATIN [Concomitant]
     Active Substance: OCTREOTIDE ACETATE
  2. CALCIUM WITH VITAMIN D [Concomitant]
     Active Substance: CALCIUM\VITAMIN D
  3. PROLIA [Concomitant]
     Active Substance: DENOSUMAB
  4. XERMELO [Suspect]
     Active Substance: TELOTRISTAT ETHYL
     Indication: CARCINOID SYNDROME
     Dates: start: 20191219

REACTIONS (10)
  - Fall [Recovered/Resolved]
  - Disease progression [Unknown]
  - Urinary tract infection [Unknown]
  - Asthenia [Unknown]
  - Blood calcium decreased [Unknown]
  - Hepatic neoplasm [Not Recovered/Not Resolved]
  - Diarrhoea [Recovered/Resolved]
  - Product dose omission [Recovered/Resolved]
  - Dehydration [Unknown]
  - Fall [Recovered/Resolved]

NARRATIVE: CASE EVENT DATE: 201912
